FAERS Safety Report 9117801 (Version 1)
Quarter: 2013Q1

REPORT INFORMATION
  Report Type: Spontaneous
  Country: US (occurrence: US)
  Receive Date: 20130125
  Receipt Date: 20130125
  Transmission Date: 20140127
  Serious: Yes (Other)
  Sender: FDA-Public Use
  Company Number: US-RB-048831-13

PATIENT
  Age: 58 Year
  Sex: Female

DRUGS (8)
  1. SUBOXONE FILM [Suspect]
     Dosage: SUBOXONE FILM
     Route: 060
     Dates: start: 201210, end: 20121225
  2. SUBOXONE FILM [Suspect]
     Indication: DRUG DEPENDENCE
     Dosage: SUBOXONE FILM; 4 MG/ONE TIME
     Route: 060
     Dates: start: 20121228, end: 20121228
  3. KLONOPIN [Concomitant]
     Indication: ANXIETY
     Dosage: DOSING DETAILS UNKNOWN
     Route: 065
  4. SOMA [Concomitant]
     Indication: MUSCLE SPASMS
     Dosage: DOSING DETAILS UNKNOWN
     Route: 065
  5. NORVASC [Concomitant]
     Indication: HYPERTENSION
     Dosage: DOSING DETAILS UNKNOWN
     Route: 065
  6. CRESTOR [Concomitant]
     Indication: BLOOD CHOLESTEROL INCREASED
     Dosage: DOSING DETAILS UNKNOWN
     Route: 065
  7. VITAMIN D [Concomitant]
     Indication: VITAMIN SUPPLEMENTATION
     Dosage: ONCE A WEEK
     Route: 065
  8. MAGNESIUM [Concomitant]
     Indication: MUSCLE SPASMS
     Dosage: DOSING DETAILS UNKNOWN
     Route: 065

REACTIONS (6)
  - Hot flush [Not Recovered/Not Resolved]
  - Condition aggravated [Not Recovered/Not Resolved]
  - Restlessness [Not Recovered/Not Resolved]
  - Irritability [Not Recovered/Not Resolved]
  - Wrong technique in drug usage process [Recovered/Resolved]
  - Suicidal ideation [Recovered/Resolved]
